FAERS Safety Report 14629707 (Version 1)
Quarter: 2018Q1

REPORT INFORMATION
  Report Type: Spontaneous
  Country: FR (occurrence: FR)
  Receive Date: 20180313
  Receipt Date: 20180313
  Transmission Date: 20180509
  Serious: Yes (Other)
  Sender: FDA-Public Use
  Company Number: FR-MERCK KGAA-2043597

PATIENT
  Age: 54 Year
  Sex: Female

DRUGS (1)
  1. NOVOTHYROX [Suspect]
     Active Substance: LEVOTHYROXINE SODIUM
     Indication: PRODUCT USED FOR UNKNOWN INDICATION

REACTIONS (21)
  - Alopecia [None]
  - Palpitations [None]
  - Loss of personal independence in daily activities [None]
  - Stress [None]
  - Thyroglobulin increased [None]
  - Gamma-glutamyltransferase increased [None]
  - Myalgia [None]
  - Insomnia [None]
  - Hyperthyroidism [None]
  - Irritability [None]
  - Nightmare [None]
  - Anxiety [None]
  - Malaise [None]
  - Feeling abnormal [None]
  - Disturbance in attention [None]
  - Fatigue [None]
  - Musculoskeletal pain [None]
  - Communication disorder [None]
  - Hot flush [None]
  - Arthralgia [None]
  - Emotional disorder [None]

NARRATIVE: CASE EVENT DATE: 20170915
